FAERS Safety Report 10109815 (Version 2)
Quarter: 2014Q3

REPORT INFORMATION
  Report Type: Spontaneous
  Country: US (occurrence: None)
  Receive Date: 20140421
  Receipt Date: 20140722
  Transmission Date: 20150326
  Serious: No
  Sender: FDA-Public Use
  Company Number: AEGR000350

PATIENT
  Age: 50 Year
  Sex: Male
  Weight: 93.4 kg

DRUGS (7)
  1. ZETIA [Concomitant]
     Active Substance: EZETIMIBE
  2. JUXTAPID [Suspect]
     Active Substance: LOMITAPIDE MESYLATE
     Indication: TYPE IIA HYPERLIPIDAEMIA
     Route: 048
     Dates: start: 20140303
  3. CHOLESTYRAMINE (COLESTYRAMINE) [Concomitant]
  4. VICODIN(HYDROCODONE BITARTRATE, PARACETAMOL) [Concomitant]
  5. OXYCONTIN(OXYCODONE HYDROCHLORIDE) [Concomitant]
  6. TYLENOL WITH CODEINE NO.3(CODEINE PHOSPHATE, PARACETAMOL) [Concomitant]
  7. METOPROLOL (METOPROLOL TARTRATE) [Concomitant]
     Active Substance: METOPROLOL TARTRATE

REACTIONS (2)
  - Weight decreased [None]
  - Diarrhoea [None]

NARRATIVE: CASE EVENT DATE: 20140307
